FAERS Safety Report 4817796-7 (Version None)
Quarter: 2005Q4

REPORT INFORMATION
  Report Type: 
  Country: None (occurrence: None)
  Receive Date: 20051031
  Receipt Date: 20051031
  Transmission Date: 20060501
  Serious: Yes (Hospitalization)
  Sender: FDA-Public Use
  Company Number: None

PATIENT
  Age: 56 Year
  Sex: Male
  Weight: 78.9259 kg

DRUGS (2)
  1. ATENOLOL [Suspect]
     Indication: HYPERTENSION
     Dosage: 25 MG PO DAILY
     Route: 048
  2. VERAPAMIL [Suspect]
     Indication: HYPERTENSION
     Dosage: 240 MG PO DAILY
     Route: 048

REACTIONS (3)
  - BRADYCARDIA [None]
  - DIZZINESS [None]
  - HYPOTENSION [None]
